FAERS Safety Report 18810205 (Version 1)
Quarter: 2021Q1

REPORT INFORMATION
  Report Type: Spontaneous
  Country: JP (occurrence: JP)
  Receive Date: 20210129
  Receipt Date: 20210129
  Transmission Date: 20210419
  Serious: Yes (Other)
  Sender: FDA-Public Use
  Company Number: JP-FERRINGPH-2021FE00397

PATIENT
  Age: 45 Year
  Sex: Male

DRUGS (3)
  1. MINIRINMELT [Suspect]
     Active Substance: DESMOPRESSIN ACETATE
     Indication: DIABETES INSIPIDUS
     Dosage: 60 UG TWICE DAILY AT ONE TABLET
     Route: 048
  2. RIUP [Concomitant]
     Active Substance: MINOXIDIL
     Indication: ALOPECIA
     Route: 065
  3. FINASTERIDE. [Concomitant]
     Active Substance: FINASTERIDE
     Indication: ALOPECIA
     Route: 065

REACTIONS (7)
  - Physical deconditioning [Unknown]
  - Cold sweat [Unknown]
  - Dizziness [Unknown]
  - Fall [Unknown]
  - Treatment noncompliance [Unknown]
  - Water intoxication [Unknown]
  - Product dose omission in error [Unknown]

NARRATIVE: CASE EVENT DATE: 2017
